FAERS Safety Report 9926174 (Version 2)
Quarter: 2014Q1

REPORT INFORMATION
  Report Type: Spontaneous
  Country: BR (occurrence: BR)
  Receive Date: 20140226
  Receipt Date: 20140226
  Transmission Date: 20141002
  Serious: Yes (Other)
  Sender: FDA-Public Use
  Company Number: BR-PFIZER INC-2014028150

PATIENT
  Age: 81 Year
  Sex: Female
  Weight: 55 kg

DRUGS (11)
  1. FRONTAL [Suspect]
     Indication: DEPRESSION
     Dosage: UNSPECIFIED DOSE(STRENGHT 1 MG); 1X/DAY (EVERY NIGHT)
     Route: 048
     Dates: start: 2009, end: 2011
  2. FRONTAL [Suspect]
     Indication: NERVOUSNESS
     Dosage: UNSPECIFIED DOSE(STRENGHT 2 MG); UNK
     Dates: start: 2011
  3. FRONTAL [Suspect]
     Indication: SLEEP DISORDER
  4. FRONTAL [Suspect]
     Indication: INSOMNIA
  5. CIPROFLOXACIN [Concomitant]
     Indication: GASTROINTESTINAL DISORDER
     Dosage: UNK
     Dates: start: 201401
  6. DETRUSITOL LA [Concomitant]
     Indication: URINARY INCONTINENCE
     Dosage: STRENGTH 4 MG, UNSPECIFIED DOSE 1X/DAY
  7. DRAMIN [Concomitant]
     Indication: NAUSEA
     Dosage: 1 CAPSULE OR TABLET (FORMULATION UNSPECIFIED) AS NEEDED
     Dates: start: 201401
  8. DUSPATALIN [Concomitant]
     Indication: GASTROINTESTINAL INFLAMMATION
     Dosage: 1 CAPSULE OR TABLET (FORMULATION NOT SPECIFIED), 2X/DAY
     Dates: start: 20140121
  9. MESACOL [Concomitant]
     Indication: GASTROINTESTINAL INFLAMMATION
     Dosage: UNK
     Dates: start: 201401
  10. DIOVAN (VALSARTAN) [Concomitant]
     Indication: HYPERTENSION
     Dosage: UNSPECIFIED DOSE, 1X/DAY
     Dates: start: 2009
  11. OMEPRAZOLE [Concomitant]
     Indication: ABDOMINAL PAIN UPPER
     Dosage: UNSPECIFIED DOSE, 1X/DAY
     Dates: start: 2011

REACTIONS (4)
  - Drug dependence [Unknown]
  - Deafness [Unknown]
  - Diverticulum [Unknown]
  - Drug ineffective [Unknown]
